FAERS Safety Report 6146405-2 (Version None)
Quarter: 2009Q2

REPORT INFORMATION
  Report Type: 
  Country: None (occurrence: None)
  Receive Date: 20090407
  Receipt Date: 20090327
  Transmission Date: 20091009
  Serious: Yes (Other)
  Sender: FDA-Public Use
  Company Number: PHHY2009DE10358

PATIENT
  Sex: Female
  Weight: 69 kg

DRUGS (2)
  1. VOLTAREN DOLO LIQUID [Suspect]
     Indication: BACK PAIN
     Dosage: 12.5 MG EACH TIME AT 3 P.M, 8 P.M, AND 11 P.M
     Route: 048
     Dates: start: 20090203, end: 20090203
  2. DELIX [Concomitant]

REACTIONS (2)
  - EYE SWELLING [None]
  - SWELLING FACE [None]
